FAERS Safety Report 7909142-7 (Version None)
Quarter: 2011Q4

REPORT INFORMATION
  Report Type: 
  Country: None (occurrence: None)
  Receive Date: 20111111
  Receipt Date: 20101130
  Transmission Date: 20120403
  Serious: No
  Sender: FDA-Public Use
  Company Number: US-GLAXOSMITHKLINE-A0897829A

PATIENT

DRUGS (8)
  1. ADVAIR DISKUS 100/50 [Concomitant]
  2. MIRALAX [Suspect]
     Indication: CONSTIPATION
     Dosage: 17G PER DAY
     Route: 048
     Dates: start: 20101101
  3. ASPIRIN [Concomitant]
  4. STOOL SOFTENER [Concomitant]
  5. FEXOFENADINE [Concomitant]
  6. CYANOCOBALAMIN [Concomitant]
  7. MONTELUKAST SODIUM [Concomitant]
  8. CARVEDILOL [Suspect]
     Indication: PRODUCT USED FOR UNKNOWN INDICATION
     Route: 065

REACTIONS (8)
  - FEELING ABNORMAL [None]
  - RESTLESSNESS [None]
  - GAIT DISTURBANCE [None]
  - GASTROINTESTINAL PAIN [None]
  - INSOMNIA [None]
  - DECREASED APPETITE [None]
  - DIARRHOEA [None]
  - ASTHENIA [None]
